FAERS Safety Report 9321725 (Version 1)
Quarter: 2013Q2

REPORT INFORMATION
  Report Type: Spontaneous
  Country: GB (occurrence: None)
  Receive Date: 20130529
  Receipt Date: 20130529
  Transmission Date: 20140414
  Serious: Yes (Life-Threatening, Hospitalization)
  Sender: FDA-Public Use
  Company Number: AUR-APL-2013-04277

PATIENT
  Age: 69 Year
  Sex: Female

DRUGS (9)
  1. METFORMIN [Suspect]
     Indication: PRODUCT USED FOR UNKNOWN INDICATION
     Route: 048
     Dates: start: 20031229, end: 20130403
  2. ALLOPURINOL(ALLOPURINOL) [Concomitant]
  3. ATORVASTATIN(ATORVASTATIN) [Concomitant]
  4. BENDROFLUMETHIAZIDE(BENDROFLUMETHIAZIDE) [Concomitant]
  5. CLOPIDOGREL(CLOPIDOGREL) [Concomitant]
  6. DOXAZOSIN(DOXAZOSIN) [Concomitant]
  7. ESTRIOL(ESTRIOL) [Concomitant]
  8. LISINOPRIL(LISINOPRIL) [Concomitant]
  9. PARACETAMOL(PARACETAMOL) [Concomitant]

REACTIONS (5)
  - Metabolic acidosis [None]
  - Diarrhoea [None]
  - Change of bowel habit [None]
  - Renal impairment [None]
  - General physical health deterioration [None]
